FAERS Safety Report 6381691-5 (Version None)
Quarter: 2009Q3

REPORT INFORMATION
  Report Type: 
  Country: None (occurrence: None)
  Receive Date: 20090930
  Receipt Date: 20090917
  Transmission Date: 20100115
  Serious: Yes (Other)
  Sender: FDA-Public Use
  Company Number: PHHY2009BR40235

PATIENT
  Age: 56 Year
  Sex: Female

DRUGS (2)
  1. EXFORGE [Suspect]
     Dosage: 1 DF, QD
     Dates: start: 20060901
  2. DIOVAN AMLO FIX [Suspect]
     Indication: HYPERTENSION
     Dosage: ONE TABLET OF EACH ACTIVE DAILY

REACTIONS (5)
  - BLOOD PRESSURE INCREASED [None]
  - BRONCHITIS [None]
  - ELECTROCAUTERISATION [None]
  - ERYSIPELAS [None]
  - SWELLING [None]
